FAERS Safety Report 17524489 (Version 1)
Quarter: 2020Q1

REPORT INFORMATION
  Report Type: Other
  Country: FR (occurrence: FR)
  Receive Date: 20200311
  Receipt Date: 20200311
  Transmission Date: 20200409
  Serious: Yes (Life-Threatening)
  Sender: FDA-Public Use
  Company Number: FR-CELLTRION INC.-2020FR020376

PATIENT

DRUGS (1)
  1. TRUXIMA [Suspect]
     Active Substance: RITUXIMAB-ABBS
     Indication: WALDENSTROM^S MACROGLOBULINAEMIA
     Dosage: 700 MILLIGRAM (TOTAL)
     Route: 041
     Dates: start: 20200122, end: 20200122

REACTIONS (6)
  - Cardiac arrest [Recovered/Resolved]
  - Chest discomfort [Recovered/Resolved]
  - Hypotension [Recovered/Resolved]
  - Malaise [Recovered/Resolved]
  - Product use in unapproved indication [Unknown]
  - Dyspnoea [Recovered/Resolved]

NARRATIVE: CASE EVENT DATE: 20200122
